FAERS Safety Report 12581163 (Version 2)
Quarter: 2017Q2

REPORT INFORMATION
  Report Type: Spontaneous
  Country: FR (occurrence: FR)
  Receive Date: 20160721
  Receipt Date: 20170404
  Transmission Date: 20170830
  Serious: Yes (Death)
  Sender: FDA-Public Use
  Company Number: FR-TEVA-676505ISR

PATIENT
  Age: 26 Year
  Sex: Male
  Weight: 95 kg

DRUGS (7)
  1. VESANOID [Suspect]
     Active Substance: TRETINOIN
     Indication: ACUTE PROMYELOCYTIC LEUKAEMIA
     Dosage: MAINTENANCE TREATMENT
     Route: 065
     Dates: end: 201604
  2. DEXAMETHASONE MYLAN [Concomitant]
     Active Substance: DEXAMETHASONE
     Indication: LEUKOCYTOSIS
     Dosage: 20 MILLIGRAM DAILY;
     Dates: start: 20160621
  3. VESANOID [Suspect]
     Active Substance: TRETINOIN
     Dates: start: 20160611, end: 20160623
  4. PIPERACILLIN AND TAZOBACTAM [Concomitant]
     Active Substance: PIPERACILLIN SODIUM\TAZOBACTAM SODIUM
     Indication: PYREXIA
     Dosage: 12 GRAM DAILY;
     Dates: start: 20160621
  5. VANCOMYCINE SANDOZ [Concomitant]
     Active Substance: VANCOMYCIN
     Indication: PYREXIA
     Dosage: 2.5 GRAM DAILY;
     Dates: start: 20160622
  6. TRISENOX [Suspect]
     Active Substance: ARSENIC TRIOXIDE
     Indication: ACUTE PROMYELOCYTIC LEUKAEMIA
     Route: 065
     Dates: start: 20160615, end: 20160623
  7. HYDREA [Concomitant]
     Active Substance: HYDROXYUREA
     Indication: LEUKOCYTOSIS
     Dosage: 4 GRAM DAILY;
     Dates: start: 20160621

REACTIONS (6)
  - Pleural effusion [Fatal]
  - Pericardial effusion [Fatal]
  - Pyrexia [Fatal]
  - Hepatic failure [Fatal]
  - Renal failure [Fatal]
  - Acute promyelocytic leukaemia differentiation syndrome [Fatal]

NARRATIVE: CASE EVENT DATE: 20160621
